FAERS Safety Report 8346644-6 (Version None)
Quarter: 2012Q2

REPORT INFORMATION
  Report Type: 
  Country: None (occurrence: None)
  Receive Date: 20120509
  Receipt Date: 20120505
  Transmission Date: 20120825
  Serious: Yes (Hospitalization, Other)
  Sender: FDA-Public Use
  Company Number: PHHY2012BR039009

PATIENT
  Sex: Male

DRUGS (1)
  1. FORMOTEROL FUMARATE [Suspect]
     Dosage: UNK UKN, UNK

REACTIONS (3)
  - SYNCOPE [None]
  - COUGH [None]
  - GASTROOESOPHAGEAL REFLUX DISEASE [None]
